FAERS Safety Report 8550733-0 (Version None)
Quarter: 2012Q3

REPORT INFORMATION
  Report Type: 
  Country: None (occurrence: None)
  Receive Date: 20120730
  Receipt Date: 20120725
  Transmission Date: 20120928
  Serious: Yes (Hospitalization, Other)
  Sender: FDA-Public Use
  Company Number: US-PFIZER INC-2012180846

PATIENT
  Sex: Female

DRUGS (4)
  1. CELEBREX [Suspect]
     Dosage: 200 MG, 1X/DAY
     Route: 048
     Dates: start: 20120101
  2. ARTHROTEC [Suspect]
     Indication: ARTHRITIS
     Dosage: 0.2/50 MG, 2X/DAY
     Route: 048
  3. ARTHROTEC [Suspect]
     Dosage: 0.2/50 MG, 1X/DAY
     Route: 048
     Dates: end: 20111101
  4. CELEBREX [Suspect]
     Indication: ARTHRITIS
     Dosage: 200 MG, 2X/DAY
     Route: 048
     Dates: start: 20120101, end: 20120101

REACTIONS (3)
  - ARTHRALGIA [None]
  - DYSPEPSIA [None]
  - ARTHROPATHY [None]
